FAERS Safety Report 9417114 (Version 2)
Quarter: 2013Q3

REPORT INFORMATION
  Report Type: Spontaneous
  Country: US (occurrence: US)
  Receive Date: 20130724
  Receipt Date: 20130802
  Transmission Date: 20140515
  Serious: Yes (Death, Hospitalization)
  Sender: FDA-Public Use
  Company Number: US-B.I. PHARMACEUTICALS,INC./RIDGEFIELD-2013-BI-21339BP

PATIENT
  Age: 63 Year
  Sex: Male

DRUGS (1)
  1. PRADAXA [Suspect]
     Indication: ATRIAL FIBRILLATION
     Dosage: 300 MG
     Route: 048
     Dates: start: 201303

REACTIONS (7)
  - Neoplasm malignant [Fatal]
  - Heart rate increased [Recovered/Resolved]
  - Pyrexia [Unknown]
  - Balance disorder [Unknown]
  - Nausea [Unknown]
  - Hypotension [Recovered/Resolved]
  - Cough [Unknown]
